FAERS Safety Report 13035843 (Version 1)
Quarter: 2016Q4

REPORT INFORMATION
  Report Type: Spontaneous
  Country: US (occurrence: US)
  Receive Date: 20161216
  Receipt Date: 20161216
  Transmission Date: 20170207
  Serious: No
  Sender: FDA-Public Use
  Company Number: US-PFIZER INC-2016316286

PATIENT
  Age: 62 Year
  Sex: Female

DRUGS (1)
  1. RELPAX [Suspect]
     Active Substance: ELETRIPTAN HYDROBROMIDE
     Indication: HEADACHE
     Dosage: 40 MG, AS NEEDED (ONCE AT ONSET OF HEADACHE)
     Route: 048

REACTIONS (3)
  - Drug dispensing error [Unknown]
  - Malaise [Unknown]
  - Product use issue [Unknown]
